FAERS Safety Report 8645808 (Version 2)
Quarter: 2014Q1

REPORT INFORMATION
  Report Type: Spontaneous
  Country: US (occurrence: None)
  Receive Date: 20120323
  Receipt Date: 20130305
  Transmission Date: 20141002
  Serious: Yes (Life-Threatening, Hospitalization, Other)
  Sender: FDA-Public Use
  Company Number: 163-21880-11093282

PATIENT
  Age: 69 Year
  Sex: Male

DRUGS (10)
  1. REVLIMID [Suspect]
     Indication: PLASMA CELL MYELOMA
     Route: 048
     Dates: start: 20110317
  2. LOW DOSE ASPIRIN (ACETYLSALICYLIC ACID) [Concomitant]
  3. TOPIRAMATE [Concomitant]
  4. DEXAMETHASONE (DEXAMETHASONE) [Concomitant]
  5. POLYETHYLENE GLYCOL 600 (MACROGOL) [Concomitant]
  6. FLOMAX (TAMSULOSIN HYDROCHLORIDE) [Concomitant]
  7. LOVAZA [Concomitant]
  8. ZYRTEC ALLERGY (CETIRIZINE HYDROCHLORIDE) [Concomitant]
  9. MIRALAX [Concomitant]
  10. OMEGA 3 (FISH OIL) [Concomitant]

REACTIONS (3)
  - Pulmonary embolism [None]
  - Dyspnoea [None]
  - Dizziness [None]
